FAERS Safety Report 15656462 (Version 1)
Quarter: 2018Q4

REPORT INFORMATION
  Report Type: Spontaneous
  Country: US (occurrence: US)
  Receive Date: 20181126
  Receipt Date: 20181126
  Transmission Date: 20190205
  Serious: Yes (Other)
  Sender: FDA-Public Use
  Company Number: US-JNJFOC-20181129850

PATIENT
  Age: 78 Year
  Sex: Male

DRUGS (1)
  1. INVOKANA [Suspect]
     Active Substance: CANAGLIFLOZIN
     Indication: DIABETIC NEPHROPATHY
     Route: 065

REACTIONS (3)
  - Chronic kidney disease [Unknown]
  - Product use in unapproved indication [Unknown]
  - Off label use [Unknown]
